FAERS Safety Report 23725085 (Version 2)
Quarter: 2024Q2

REPORT INFORMATION
  Report Type: Spontaneous
  Country: US (occurrence: US)
  Receive Date: 20240410
  Receipt Date: 20240425
  Transmission Date: 20240716
  Serious: Yes (Hospitalization)
  Sender: FDA-Public Use
  Company Number: US-MIMS-CORIMC-5021

PATIENT

DRUGS (1)
  1. AZSTARYS [Suspect]
     Active Substance: DEXMETHYLPHENIDATE HYDROCHLORIDE\SERDEXMETHYLPHENIDATE CHLORIDE
     Indication: Attention deficit hyperactivity disorder
     Dosage: 52.3 MG/10.4 MG, UNK
     Route: 065
     Dates: start: 20240219, end: 202403

REACTIONS (2)
  - Suicidal ideation [Unknown]
  - Mood altered [Unknown]

NARRATIVE: CASE EVENT DATE: 20240322
